FAERS Safety Report 9760175 (Version 1)
Quarter: 2013Q4

REPORT INFORMATION
  Report Type: Spontaneous
  Country: IT (occurrence: IT)
  Receive Date: 20131216
  Receipt Date: 20131216
  Transmission Date: 20140711
  Serious: Yes (Other)
  Sender: FDA-Public Use
  Company Number: IT-TEVA-450747ISR

PATIENT
  Age: 69 Year
  Sex: Male

DRUGS (1)
  1. TEVAGRASTIM 30 MIU [Suspect]
     Indication: NEUTROPENIA
     Dosage: 30000000 IU (INTERNATIONAL UNIT) DAILY;
     Route: 058
     Dates: start: 20121112, end: 20121114

REACTIONS (3)
  - Hyperpyrexia [Recovering/Resolving]
  - Bone pain [Recovering/Resolving]
  - Myalgia [Recovering/Resolving]
